FAERS Safety Report 12235324 (Version 3)
Quarter: 2016Q2

REPORT INFORMATION
  Report Type: Spontaneous
  Country: US (occurrence: US)
  Receive Date: 20160404
  Receipt Date: 20160422
  Transmission Date: 20160815
  Serious: Yes (Death, Hospitalization, Other)
  Sender: FDA-Public Use
  Company Number: US-BRISTOL-MYERS SQUIBB COMPANY-BMS-2016-023592

PATIENT
  Age: 69 Year
  Sex: Male
  Weight: 77.3 kg

DRUGS (1)
  1. OPDIVO [Suspect]
     Active Substance: NIVOLUMAB
     Indication: HEAD AND NECK CANCER
     Dosage: 170 MG, UNK
     Route: 042
     Dates: start: 20160323, end: 20160323

REACTIONS (5)
  - Malignant neoplasm progression [Fatal]
  - Loss of consciousness [Unknown]
  - Feeling hot [Unknown]
  - Off label use [Unknown]
  - Throat tightness [Unknown]

NARRATIVE: CASE EVENT DATE: 20160323
